FAERS Safety Report 8026148-0 (Version None)
Quarter: 2012Q1

REPORT INFORMATION
  Report Type: 
  Country: None (occurrence: None)
  Receive Date: 20120105
  Receipt Date: 20110120
  Transmission Date: 20120608
  Serious: No
  Sender: FDA-Public Use
  Company Number: US-ABBOTT-11P-163-0700556-00

PATIENT
  Sex: Female
  Weight: 93.07 kg

DRUGS (5)
  1. SYNTHROID [Suspect]
     Indication: HYPOTHYROIDISM
     Dosage: ALTERNATING DOSE W/125MCG IN AM 1 IN 2 D
     Route: 048
  2. ADIPEX [Concomitant]
     Indication: DECREASED APPETITE
  3. SYNTHROID [Suspect]
     Indication: HYPOTHYROIDISM
     Dosage: ALTERNATING DOSE WITH 112 MCG IN AM
     Route: 048
  4. PROGESTERONE [Concomitant]
     Indication: PRODUCT USED FOR UNKNOWN INDICATION
     Route: 048
  5. BIEST/TEST COMPOUND [Concomitant]
     Indication: HORMONE REPLACEMENT THERAPY

REACTIONS (2)
  - RASH [None]
  - DERMATITIS CONTACT [None]
